FAERS Safety Report 9718317 (Version 1)
Quarter: 2013Q4

REPORT INFORMATION
  Report Type: Spontaneous
  Country: US (occurrence: US)
  Receive Date: 20131125
  Receipt Date: 20131125
  Transmission Date: 20140711
  Serious: No
  Sender: FDA-Public Use
  Company Number: US-VIVUS-2013V1000253

PATIENT
  Age: 41 Year
  Sex: Female
  Weight: 77.18 kg

DRUGS (3)
  1. QSYMIA 3.75MG/23MG [Suspect]
     Indication: WEIGHT CONTROL
     Route: 048
     Dates: start: 201303, end: 20130401
  2. QSYMIA 3.75MG/23MG [Suspect]
     Indication: BLOOD CHOLESTEROL INCREASED
  3. UNSPECIFIED GENERIC CHOLESTEROL MEDICATION [Concomitant]
     Indication: BLOOD CHOLESTEROL INCREASED
     Route: 048

REACTIONS (6)
  - Pruritus [Not Recovered/Not Resolved]
  - Hyperhidrosis [Recovered/Resolved]
  - Paraesthesia [Not Recovered/Not Resolved]
  - Nervousness [Not Recovered/Not Resolved]
  - Anxiety [Recovered/Resolved]
  - Irritability [Not Recovered/Not Resolved]
